FAERS Safety Report 6278350-6 (Version None)
Quarter: 2009Q3

REPORT INFORMATION
  Report Type: 
  Country: None (occurrence: None)
  Receive Date: 20090720
  Receipt Date: 20090720
  Transmission Date: 20100115
  Serious: Yes (Other)
  Sender: FDA-Public Use
  Company Number: None

PATIENT
  Age: 63 Year
  Sex: Female
  Weight: 70.3075 kg

DRUGS (1)
  1. RAPTIVA [Suspect]
     Indication: PSORIASIS
     Dates: start: 20080212, end: 20080513

REACTIONS (7)
  - CONDITION AGGRAVATED [None]
  - INFECTED SKIN ULCER [None]
  - LOSS OF EMPLOYMENT [None]
  - PAIN [None]
  - PSORIASIS [None]
  - SCAR [None]
  - TEMPORAL ARTERITIS [None]
